FAERS Safety Report 12157314 (Version 3)
Quarter: 2016Q2

REPORT INFORMATION
  Report Type: Spontaneous
  Country: US (occurrence: US)
  Receive Date: 20160308
  Receipt Date: 20160526
  Transmission Date: 20160815
  Serious: No
  Sender: FDA-Public Use
  Company Number: US-BIOGEN-2016BI00196483

PATIENT
  Sex: Female

DRUGS (2)
  1. TECFIDERA [Suspect]
     Active Substance: DIMETHYL FUMARATE
     Indication: MULTIPLE SCLEROSIS
     Route: 065
     Dates: start: 20150414
  2. TECFIDERA [Suspect]
     Active Substance: DIMETHYL FUMARATE
     Route: 065

REACTIONS (2)
  - Dysplasia [Unknown]
  - Precancerous cells present [Not Recovered/Not Resolved]
